FAERS Safety Report 14547737 (Version 2)
Quarter: 2018Q1

REPORT INFORMATION
  Report Type: Report from Study
  Country: DE (occurrence: DE)
  Receive Date: 20180219
  Receipt Date: 20180302
  Transmission Date: 20180509
  Serious: Yes (Hospitalization, Other)
  Sender: FDA-Public Use
  Company Number: DE-ASTRAZENECA-2018SE21023

PATIENT
  Age: 25978 Day
  Sex: Female
  Weight: 54 kg

DRUGS (10)
  1. FULVESTRANT. [Suspect]
     Active Substance: FULVESTRANT
     Indication: BREAST CANCER METASTATIC
     Dosage: 500 MG, MONTHLY
     Route: 030
     Dates: start: 20161215, end: 20180208
  2. PALBOCICLIB [Suspect]
     Active Substance: PALBOCICLIB
     Indication: BREAST CANCER METASTATIC
     Dosage: 125 MG D1,-D21
     Route: 048
     Dates: start: 20170630, end: 20180215
  3. CALCIUM ION [Concomitant]
     Indication: PROPHYLAXIS
     Route: 048
     Dates: start: 20161201
  4. PALBOCICLIB [Suspect]
     Active Substance: PALBOCICLIB
     Indication: BREAST CANCER METASTATIC
     Dosage: 125 MG D1,-D21
     Route: 048
     Dates: start: 20161020, end: 20170115
  5. CALCIUM ION [Concomitant]
     Indication: PROPHYLAXIS
     Dosage: 400 IE, TWO TIMES A DAY
     Route: 048
     Dates: start: 20161201
  6. PALBOCICLIB [Suspect]
     Active Substance: PALBOCICLIB
     Indication: BREAST CANCER METASTATIC
     Dosage: 125 MG D1,-D21
     Route: 048
     Dates: start: 20170130, end: 20170628
  7. DENOSUMAB [Concomitant]
     Active Substance: DENOSUMAB
     Indication: PROPHYLAXIS
     Route: 058
     Dates: start: 20161020, end: 20170309
  8. DENOSUMAB [Concomitant]
     Active Substance: DENOSUMAB
     Indication: PROPHYLAXIS
     Route: 058
     Dates: start: 20170630
  9. BIOTIN [Concomitant]
     Active Substance: BIOTIN
     Indication: ALOPECIA
     Route: 048
     Dates: start: 20161221
  10. FULVESTRANT. [Suspect]
     Active Substance: FULVESTRANT
     Indication: BREAST CANCER METASTATIC
     Dosage: 500 MG, EVERY2 WEEKS
     Route: 030
     Dates: start: 20161020, end: 20161201

REACTIONS (1)
  - Electrocardiogram QT prolonged [Recovered/Resolved]

NARRATIVE: CASE EVENT DATE: 20180215
